FAERS Safety Report 5965560-8 (Version None)
Quarter: 2008Q4

REPORT INFORMATION
  Report Type: 
  Country: None (occurrence: None)
  Receive Date: 20081125
  Receipt Date: 20080129
  Transmission Date: 20090506
  Serious: Yes (Other)
  Sender: FDA-Public Use
  Company Number: US-AMGEN-KDL261393

PATIENT
  Sex: Female
  Weight: 53.6 kg

DRUGS (2)
  1. ENBREL [Suspect]
     Indication: JUVENILE ARTHRITIS
     Route: 058
     Dates: start: 20071010, end: 20080101
  2. METHOTREXATE [Concomitant]
     Route: 058
     Dates: start: 20050101

REACTIONS (2)
  - LUPUS-LIKE SYNDROME [None]
  - MYOSITIS [None]
